FAERS Safety Report 6999343-7 (Version None)
Quarter: 2010Q3

REPORT INFORMATION
  Report Type: 
  Country: None (occurrence: None)
  Receive Date: 20100920
  Receipt Date: 20100330
  Transmission Date: 20110219
  Serious: Yes (Other)
  Sender: FDA-Public Use
  Company Number: US-ASTRAZENECA-2006UW05664

PATIENT
  Age: 11 Year
  Sex: Female
  Weight: 35.4 kg

DRUGS (24)
  1. SEROQUEL [Suspect]
     Indication: ANXIETY
     Route: 048
     Dates: start: 20021201, end: 20040901
  2. SEROQUEL [Suspect]
     Indication: BIPOLAR DISORDER
     Route: 048
     Dates: start: 20021201, end: 20040901
  3. SEROQUEL [Suspect]
     Indication: AFFECTIVE DISORDER
     Route: 048
     Dates: start: 20021201, end: 20040901
  4. SEROQUEL [Suspect]
     Dosage: 25-50MG AT NIGHT, THEN TITRATE UPTO 100-200, 100MG DAILY, TAKE 1-2 TABLETS AT BEDTIME
     Route: 048
     Dates: start: 20021205, end: 20041029
  5. SEROQUEL [Suspect]
     Dosage: 25-50MG AT NIGHT, THEN TITRATE UPTO 100-200, 100MG DAILY, TAKE 1-2 TABLETS AT BEDTIME
     Route: 048
     Dates: start: 20021205, end: 20041029
  6. SEROQUEL [Suspect]
     Dosage: 25-50MG AT NIGHT, THEN TITRATE UPTO 100-200, 100MG DAILY, TAKE 1-2 TABLETS AT BEDTIME
     Route: 048
     Dates: start: 20021205, end: 20041029
  7. RISPERDAL [Suspect]
     Indication: DELUSION
     Dosage: ONE AND ONE HALF TWO TIMES A DAY, 1 MG TWO TIMES A DAY
     Route: 048
     Dates: start: 20000101
  8. RISPERDAL [Suspect]
     Dosage: 0.5 TO 1.5 MG
     Route: 048
     Dates: start: 20021205
  9. CLOZAPINE [Concomitant]
  10. ADDERALL XR 10 [Concomitant]
     Indication: ATTENTION DEFICIT/HYPERACTIVITY DISORDER
     Route: 048
  11. EFFEXOR [Concomitant]
  12. CLONAZEPAM [Concomitant]
     Dosage: 0.5 MG ONE HALF TABLET TWO TIMES A DAY
     Route: 048
  13. SINGULAIR [Concomitant]
     Dates: start: 20040914
  14. XOPENEX [Concomitant]
  15. PREDNISONE [Concomitant]
  16. MIRALAX [Concomitant]
  17. SYNALAR [Concomitant]
  18. DEPAKOTE [Concomitant]
     Indication: MOOD SWINGS
     Dosage: 250 MG TWO TIMES A DAY, ONE TAB EVERY MORNING, TWO TAB AT NIGHT
     Dates: start: 20021205
  19. DEPAKOTE [Concomitant]
     Indication: ANXIETY
     Dosage: 250 MG TWO TIMES A DAY, ONE TAB EVERY MORNING, TWO TAB AT NIGHT
     Dates: start: 20021205
  20. DEPAKOTE [Concomitant]
     Dosage: 750 D
     Dates: start: 20021205
  21. DEPAKOTE [Concomitant]
     Dosage: 750 D
     Dates: start: 20021205
  22. ADVAIR DISKUS 100/50 [Concomitant]
     Route: 048
  23. ADVAIR DISKUS 100/50 [Concomitant]
     Dates: start: 20021205
  24. PREVACID [Concomitant]
     Dates: start: 20040916

REACTIONS (3)
  - PANCREATITIS [None]
  - PANCREATITIS CHRONIC [None]
  - TARDIVE DYSKINESIA [None]
